FAERS Safety Report 9730407 (Version 3)
Quarter: 2014Q1

REPORT INFORMATION
  Report Type: Spontaneous
  Country: JP (occurrence: JP)
  Receive Date: 20131202
  Receipt Date: 20140102
  Transmission Date: 20141002
  Serious: Yes (Life-Threatening, Hospitalization)
  Sender: FDA-Public Use
  Company Number: JP-BAYER-2013-142036

PATIENT
  Age: 83 Year
  Sex: Female
  Weight: 45 kg

DRUGS (10)
  1. XARELTO [Suspect]
     Indication: FEMORAL ARTERY OCCLUSION
     Dosage: 10 MG, QD
     Route: 048
     Dates: start: 20130820, end: 20131116
  2. XARELTO [Interacting]
     Indication: ILIAC ARTERY OCCLUSION
  3. BAYASPIRIN [Interacting]
     Dosage: 100 MG DAILY DOSE
     Route: 048
  4. AMLODIPINE [Concomitant]
     Dosage: DAILY DOSE 5 MG
     Route: 048
  5. LANSOPRAZOLE [Concomitant]
     Dosage: DAILY DOSE 15 MG
     Route: 048
  6. MAINTATE [Concomitant]
     Dosage: DAILY DOSE 1.25 MG
     Route: 048
  7. CRESTOR [Concomitant]
     Dosage: DAILY DOSE 2.5 MG
     Route: 048
  8. SYMMETREL [Concomitant]
     Dosage: DAILY DOSE 25 MG
     Route: 048
  9. MAGMITT [Concomitant]
     Dosage: DAILY DOSE 1500 MG
     Route: 048
  10. LAXATIVES [Concomitant]

REACTIONS (7)
  - Hypernatraemia [Recovered/Resolved]
  - Renal impairment [Recovered/Resolved]
  - Platelet count decreased [Recovered/Resolved]
  - Haemoglobin decreased [Recovered/Resolved]
  - Haemorrhage subcutaneous [Recovered/Resolved]
  - Mouth haemorrhage [Recovered/Resolved]
  - Drug interaction [None]
